FAERS Safety Report 6178527-4 (Version None)
Quarter: 2009Q2

REPORT INFORMATION
  Report Type: 
  Country: None (occurrence: None)
  Receive Date: 20090430
  Receipt Date: 20090423
  Transmission Date: 20091009
  Serious: Yes (Hospitalization)
  Sender: FDA-Public Use
  Company Number: THQ2009A02307

PATIENT
  Age: 46 Year
  Sex: Female

DRUGS (4)
  1. LANSOPRAZOLE [Suspect]
     Indication: GASTRIC DISORDER
     Dosage: 1 TAB. (1 D) PER ORAL
     Route: 048
     Dates: start: 20081230, end: 20090107
  2. LANSOPRAZOLE [Suspect]
     Indication: PROPHYLAXIS
     Dosage: 1 TAB. (1 D) PER ORAL
     Route: 048
     Dates: start: 20081230, end: 20090107
  3. TEGRETOL [Suspect]
     Indication: NEURALGIA
     Dosage: 400 MG (1 D) PER ORAL
     Route: 048
     Dates: start: 20081210, end: 20090108
  4. VOLTAREN [Suspect]
     Indication: BACK PAIN
     Dosage: 400 MG (1 D) PER ORAL
     Route: 048
     Dates: start: 20081230, end: 20090107

REACTIONS (6)
  - CHOLESTASIS [None]
  - CYTOLYTIC HEPATITIS [None]
  - DRUG RASH WITH EOSINOPHILIA AND SYSTEMIC SYMPTOMS [None]
  - LYMPHADENITIS [None]
  - NASOPHARYNGITIS [None]
  - RASH MACULO-PAPULAR [None]
